FAERS Safety Report 6694850-9 (Version None)
Quarter: 2010Q2

REPORT INFORMATION
  Report Type: 
  Country: None (occurrence: None)
  Receive Date: 20100420
  Receipt Date: 20100412
  Transmission Date: 20101027
  Serious: Yes (Other)
  Sender: FDA-Public Use
  Company Number: 2010SP021290

PATIENT
  Age: 30 Year
  Sex: Female

DRUGS (1)
  1. NARINE REPETABS (LORATADINE/PSEUDOEPHEDRINE SULFATE) (LORATADINE W/PSE [Suspect]
     Indication: NASOPHARYNGITIS
     Dosage: ; PO
     Route: 048
     Dates: start: 20100306, end: 20100306

REACTIONS (3)
  - ABDOMINAL PAIN UPPER [None]
  - BACK PAIN [None]
  - TACHYCARDIA [None]
